FAERS Safety Report 13030194 (Version 5)
Quarter: 2017Q2

REPORT INFORMATION
  Report Type: Spontaneous
  Country: JP (occurrence: JP)
  Receive Date: 20161215
  Receipt Date: 20170527
  Transmission Date: 20170830
  Serious: Yes (Death, Hospitalization)
  Sender: FDA-Public Use
  Company Number: JP-AMGEN-JPNSP2016175892

PATIENT
  Age: 69 Year
  Sex: Male
  Weight: 58 kg

DRUGS (12)
  1. HALCION [Concomitant]
     Active Substance: TRIAZOLAM
     Indication: INSOMNIA
     Dosage: 0.25 MG, QD
     Route: 048
  2. SIMVASTATIN. [Concomitant]
     Active Substance: SIMVASTATIN
     Indication: HYPERCHOLESTEROLAEMIA
     Dosage: 5 MG, QD
     Route: 048
  3. FEBURIC [Concomitant]
     Active Substance: FEBUXOSTAT
     Indication: HYPERURICAEMIA
     Dosage: 10 MG, QD
     Route: 048
  4. NESP [Suspect]
     Active Substance: DARBEPOETIN ALFA
     Indication: NEPHROGENIC ANAEMIA
     Dosage: 30 MUG, QD
     Route: 058
     Dates: start: 20161201, end: 20161201
  5. MUCOSOLVAN L [Concomitant]
     Active Substance: AMBROXOL HYDROCHLORIDE
     Indication: PNEUMOCONIOSIS
     Dosage: 45 MG, QD
     Route: 048
  6. AMVALO [Concomitant]
     Indication: HYPERTENSION
     Dosage: UNK, BID
     Route: 048
  7. GASTER [Concomitant]
     Active Substance: FAMOTIDINE
     Indication: GASTRITIS
     Dosage: 20 MG, QD
     Route: 048
  8. COMELIAN [Concomitant]
     Active Substance: DILAZEP
     Indication: PROTEIN URINE
     Dosage: 100 MG, TID
     Route: 048
  9. TOUGHMAC E [Concomitant]
     Active Substance: AMYLASE\LIPASE\PROTEASE
     Indication: GASTRITIS
     Dosage: 1.5 G, TID
     Route: 048
  10. LASIX [Concomitant]
     Active Substance: FUROSEMIDE
     Indication: OEDEMA DUE TO CARDIAC DISEASE
     Dosage: 60 MG, UNK
     Route: 048
  11. MUCODYNE [Concomitant]
     Active Substance: CARBOCYSTEINE
     Indication: PNEUMOCONIOSIS
     Dosage: 500 MG, TID
     Route: 048
  12. PELEX (ACETAMINOPHEN\CAFFEINE\CHLORPHENIRAMINE MALEATE\SALICYLAMIDE) [Concomitant]
     Active Substance: ACETAMINOPHEN\CAFFEINE\CHLORPHENIRAMINE MALEATE\SALICYLAMIDE
     Indication: VIRAL UPPER RESPIRATORY TRACT INFECTION
     Dosage: UNK UNK, TID
     Dates: end: 20161207

REACTIONS (1)
  - Pulmonary oedema [Fatal]

NARRATIVE: CASE EVENT DATE: 20161203
